FAERS Safety Report 23084683 (Version 1)
Quarter: 2023Q4

REPORT INFORMATION
  Report Type: Spontaneous
  Country: US (occurrence: None)
  Receive Date: 20231019
  Receipt Date: 20231019
  Transmission Date: 20240110
  Serious: Yes (Hospitalization)
  Sender: FDA-Public Use
  Company Number: None

PATIENT
  Sex: Male

DRUGS (3)
  1. ADYNOVATE [Suspect]
     Active Substance: ANTIHEMOPHILIC FACTOR, HUMAN RECOMBINANT
     Indication: Factor VII deficiency
     Dosage: OTHER QUANTITY : 2500 UNITS;?OTHER FREQUENCY : EVERY 24 HOURS;?ADYNOVATE INFUSE (4469-5461) SLOW IV
     Route: 042
     Dates: start: 202309
  2. BLUNT FILRE NEEDLE [Concomitant]
  3. HEMLIBRA SDV [Concomitant]

REACTIONS (1)
  - Mouth haemorrhage [None]
